FAERS Safety Report 5016258-4 (Version None)
Quarter: 2006Q2

REPORT INFORMATION
  Report Type: 
  Country: None (occurrence: None)
  Receive Date: 20060414
  Receipt Date: 20060208
  Transmission Date: 20061013
  Serious: No
  Sender: FDA-Public Use
  Company Number: 2006SP000683

PATIENT
  Age: 70 Year
  Sex: Female

DRUGS (6)
  1. LUNESTA [Suspect]
     Indication: INSOMNIA
     Dosage: 3 MG;HS;ORAL
     Route: 048
     Dates: start: 20060101
  2. TYLENOL (CAPLET) [Concomitant]
  3. COZAAR [Concomitant]
  4. HYTRIN [Concomitant]
  5. ATENOLOL [Concomitant]
  6. EVISTA [Concomitant]

REACTIONS (5)
  - DRUG INEFFECTIVE [None]
  - DYSGEUSIA [None]
  - HEADACHE [None]
  - INITIAL INSOMNIA [None]
  - NIGHTMARE [None]
